FAERS Safety Report 17785459 (Version 1)
Quarter: 2020Q2

REPORT INFORMATION
  Report Type: Spontaneous
  Country: US (occurrence: US)
  Receive Date: 20200514
  Receipt Date: 20200514
  Transmission Date: 20200714
  Serious: No
  Sender: FDA-Public Use
  Company Number: US-TORRENT-00007720

PATIENT
  Age: 70 Year
  Sex: Female
  Weight: 80 kg

DRUGS (4)
  1. TYLENOL [Concomitant]
     Active Substance: ACETAMINOPHEN
     Indication: OSTEOARTHRITIS
     Dosage: UNKNOWN
  2. PEPCID [Concomitant]
     Active Substance: FAMOTIDINE
     Indication: GASTROOESOPHAGEAL REFLUX DISEASE
     Dosage: UNKNOWN
  3. LOSARTAN AND HYDROCHLOROTHIAZIDE [Suspect]
     Active Substance: HYDROCHLOROTHIAZIDE\LOSARTAN POTASSIUM
     Indication: HYPERTENSION
     Dosage: 50/12.5 MG FROM LAST 15 YEARS
  4. HYDROXYCHLOROQUINE [Concomitant]
     Active Substance: HYDROXYCHLOROQUINE
     Indication: SYSTEMIC LUPUS ERYTHEMATOSUS
     Dosage: UNKNOWN

REACTIONS (3)
  - Malaise [Unknown]
  - Abdominal pain upper [Unknown]
  - Fatigue [Unknown]
